FAERS Safety Report 5724262-3 (Version None)
Quarter: 2008Q2

REPORT INFORMATION
  Report Type: 
  Country: None (occurrence: None)
  Receive Date: 20080430
  Receipt Date: 20080421
  Transmission Date: 20081010
  Serious: Yes (Hospitalization, Other)
  Sender: FDA-Public Use
  Company Number: JP-PFIZER INC-2008021331

PATIENT
  Sex: Female

DRUGS (13)
  1. DIFLUCAN [Suspect]
     Indication: OESOPHAGEAL CANDIDIASIS
     Route: 048
     Dates: start: 20080301, end: 20080303
  2. PRODIF [Suspect]
     Indication: OESOPHAGEAL CANDIDIASIS
     Route: 042
     Dates: start: 20080220, end: 20080226
  3. PRODIF [Suspect]
     Dosage: DAILY DOSE:126.1MG
     Route: 042
  4. PREDONINE [Concomitant]
     Route: 048
  5. LOXONIN [Concomitant]
     Route: 048
  6. LEXOTAN [Concomitant]
     Route: 048
  7. POLLAKISU [Concomitant]
     Route: 048
  8. LANSOPRAZOLE [Concomitant]
     Route: 048
  9. ALENDRONATE SODIUM [Concomitant]
     Route: 048
  10. CALBLOCK [Concomitant]
     Route: 048
  11. MUCOSOLVAN [Concomitant]
     Route: 048
  12. OLMESARTAN MEDOXOMIL [Concomitant]
     Route: 048
  13. MAGNESIUM OXIDE [Concomitant]
     Route: 048

REACTIONS (1)
  - INAPPROPRIATE ANTIDIURETIC HORMONE SECRETION [None]
